FAERS Safety Report 19126524 (Version 1)
Quarter: 2021Q2

REPORT INFORMATION
  Report Type: Spontaneous
  Country: US (occurrence: US)
  Receive Date: 20210413
  Receipt Date: 20210413
  Transmission Date: 20210717
  Serious: No
  Sender: FDA-Public Use
  Company Number: US-ALLERGAN-1816018US

PATIENT
  Sex: Female

DRUGS (7)
  1. CLOBETASOL [Concomitant]
     Active Substance: CLOBETASOL
     Indication: ALOPECIA UNIVERSALIS
     Dosage: UNK
  2. TRIAMCINOLONE [Concomitant]
     Active Substance: TRIAMCINOLONE
     Indication: ALOPECIA UNIVERSALIS
     Dosage: UNK
  3. BIMATOPROST UNK [Suspect]
     Active Substance: BIMATOPROST
     Indication: GROWTH OF EYELASHES
     Dosage: UNK
     Route: 061
  4. MINOXIDIL. [Concomitant]
     Active Substance: MINOXIDIL
     Indication: ALOPECIA UNIVERSALIS
     Dosage: UNK UNK, QD
  5. BIMATOPROST UNK [Suspect]
     Active Substance: BIMATOPROST
     Indication: MADAROSIS
  6. FLUOCINONIDE. [Concomitant]
     Active Substance: FLUOCINONIDE
     Indication: ALOPECIA UNIVERSALIS
     Dosage: UNK
  7. BIOTIN [Concomitant]
     Active Substance: BIOTIN
     Indication: ALOPECIA UNIVERSALIS
     Dosage: 10000 ?G, QD

REACTIONS (4)
  - Drug ineffective [Unknown]
  - Off label use [Unknown]
  - Anxiety [Unknown]
  - Arthritis [Unknown]
